FAERS Safety Report 8335604-7 (Version None)
Quarter: 2012Q2

REPORT INFORMATION
  Report Type: 
  Country: None (occurrence: None)
  Receive Date: 20120504
  Receipt Date: 20120426
  Transmission Date: 20120825
  Serious: Yes (Death)
  Sender: FDA-Public Use
  Company Number: US-BIOGENIDEC-2012BI011180

PATIENT
  Age: 20 Year
  Sex: Female

DRUGS (3)
  1. PREDNISONE TAB [Concomitant]
     Route: 048
     Dates: start: 20110101, end: 20120101
  2. TYSABRI [Suspect]
     Indication: MULTIPLE SCLEROSIS
     Route: 042
     Dates: start: 20110106, end: 20110622
  3. STEROIDS (NOS) [Concomitant]
     Indication: MULTIPLE SCLEROSIS
     Route: 042
     Dates: start: 20110101, end: 20120101

REACTIONS (4)
  - SEPTIC SHOCK [None]
  - RESPIRATORY FAILURE [None]
  - PNEUMONIA [None]
  - MULTIPLE SCLEROSIS [None]
